FAERS Safety Report 24376079 (Version 1)
Quarter: 2024Q3

REPORT INFORMATION
  Report Type: Spontaneous
  Country: US (occurrence: None)
  Receive Date: 20240926
  Receipt Date: 20240926
  Transmission Date: 20241017
  Serious: Yes (Hospitalization)
  Sender: Public
  Company Number: None

PATIENT
  Age: 69 Year
  Sex: Male
  Weight: 48 kg

DRUGS (2)
  1. APIXABAN [Suspect]
     Active Substance: APIXABAN
     Indication: Vascular graft
     Dosage: 5.00 MG TWICE A DAY ORAL
     Route: 048
  2. ASPIRIN [Suspect]
     Active Substance: ASPIRIN
     Dosage: 81.00 MG DAILY ORAL ?
     Route: 048

REACTIONS (6)
  - Dyspnoea [None]
  - Haemoglobin decreased [None]
  - Arteriovenous malformation [None]
  - Gastrointestinal haemorrhage [None]
  - Barrett^s oesophagus [None]
  - Gastrointestinal disorder [None]

NARRATIVE: CASE EVENT DATE: 20230818
